FAERS Safety Report 6875328-6 (Version None)
Quarter: 2010Q3

REPORT INFORMATION
  Report Type: 
  Country: None (occurrence: None)
  Receive Date: 20100727
  Receipt Date: 20070702
  Transmission Date: 20110219
  Serious: Yes (Hospitalization, Other)
  Sender: FDA-Public Use
  Company Number: US-PFIZER INC-2006146860

PATIENT
  Sex: Male
  Weight: 93 kg

DRUGS (6)
  1. CELEBREX [Suspect]
     Indication: CARPAL TUNNEL SYNDROME
     Dates: start: 20011101
  2. CELEBREX [Suspect]
     Indication: ARTHRITIS
  3. VIOXX [Suspect]
     Indication: CARPAL TUNNEL SYNDROME
     Dates: start: 20011101
  4. VIOXX [Suspect]
     Indication: ARTHRITIS
  5. ACETYLSALICYLIC ACID SRT [Concomitant]
     Dates: start: 20000101
  6. IBUPROFEN TABLETS [Concomitant]
     Dates: start: 20000101

REACTIONS (1)
  - MYOCARDIAL INFARCTION [None]
